FAERS Safety Report 4990898-0 (Version None)
Quarter: 2006Q2

REPORT INFORMATION
  Report Type: 
  Country: None (occurrence: None)
  Receive Date: 20060427
  Receipt Date: 20060419
  Transmission Date: 20061013
  Serious: Yes (Hospitalization, Other)
  Sender: FDA-Public Use
  Company Number: CIP06000556

PATIENT
  Age: 62 Year
  Sex: Female

DRUGS (4)
  1. RISEDRONATE SODIUM [Suspect]
     Indication: OSTEOPOROSIS
     Dosage: 2.5 MG DAILY ORAL
     Route: 048
     Dates: start: 20050920, end: 20060220
  2. PREDNISOLONE [Suspect]
     Indication: RHEUMATOID ARTHRITIS
  3. NSAIDS [Concomitant]
  4. THYRADIN (THYROID) [Concomitant]

REACTIONS (12)
  - GINGIVAL ABSCESS [None]
  - HYPOAESTHESIA ORAL [None]
  - INFECTION IN AN IMMUNOCOMPROMISED HOST [None]
  - JAW DISORDER [None]
  - MEDICAL DEVICE COMPLICATION [None]
  - MUSCULOSKELETAL PAIN [None]
  - OSTEOMYELITIS [None]
  - OSTEONECROSIS [None]
  - PAIN [None]
  - PARALYSIS [None]
  - RESORPTION BONE INCREASED [None]
  - TOOTH DISORDER [None]
